FAERS Safety Report 9459296 (Version 1)
Quarter: 2013Q3

REPORT INFORMATION
  Report Type: Spontaneous
  Country: JP (occurrence: JP)
  Receive Date: 20130815
  Receipt Date: 20130815
  Transmission Date: 20140515
  Serious: Yes (Other)
  Sender: FDA-Public Use
  Company Number: JP-MYLANLABS-2013S1017466

PATIENT
  Age: 6 Year
  Sex: Female

DRUGS (12)
  1. METHOTREXATE [Suspect]
     Indication: B PRECURSOR TYPE ACUTE LEUKAEMIA
     Route: 037
  2. METHOTREXATE [Suspect]
     Indication: B PRECURSOR TYPE ACUTE LEUKAEMIA
     Route: 041
  3. METHOTREXATE [Suspect]
     Indication: B PRECURSOR TYPE ACUTE LEUKAEMIA
     Route: 065
  4. PREDNISONE [Concomitant]
     Indication: B PRECURSOR TYPE ACUTE LEUKAEMIA
     Route: 065
  5. VINCRISTINE [Concomitant]
     Indication: B PRECURSOR TYPE ACUTE LEUKAEMIA
     Route: 065
  6. PIRARUBICIN [Concomitant]
     Indication: B PRECURSOR TYPE ACUTE LEUKAEMIA
     Route: 065
  7. ASPARAGINASE [Concomitant]
     Indication: B PRECURSOR TYPE ACUTE LEUKAEMIA
     Route: 065
  8. CYTARABINE [Concomitant]
     Indication: B PRECURSOR TYPE ACUTE LEUKAEMIA
     Route: 065
  9. MERCAPTOPURINE [Concomitant]
     Indication: B PRECURSOR TYPE ACUTE LEUKAEMIA
     Route: 065
  10. CYCLOPHOSPHAMIDE [Concomitant]
     Indication: B PRECURSOR TYPE ACUTE LEUKAEMIA
     Route: 065
  11. HYDROCORTISONE [Concomitant]
     Indication: B PRECURSOR TYPE ACUTE LEUKAEMIA
     Route: 037
  12. CYTARABINE [Concomitant]
     Indication: B PRECURSOR TYPE ACUTE LEUKAEMIA
     Route: 037

REACTIONS (4)
  - Encephalopathy [Unknown]
  - Convulsion [Recovered/Resolved]
  - Hippocampal sclerosis [Unknown]
  - Temporal lobe epilepsy [Unknown]
